FAERS Safety Report 13042695 (Version 2)
Quarter: 2017Q1

REPORT INFORMATION
  Report Type: Spontaneous
  Country: US (occurrence: US)
  Receive Date: 20161219
  Receipt Date: 20170206
  Transmission Date: 20170428
  Serious: No
  Sender: FDA-Public Use
  Company Number: US-PFIZER INC-2016587662

PATIENT
  Sex: Female

DRUGS (1)
  1. XELJANZ [Suspect]
     Active Substance: TOFACITINIB CITRATE
     Dosage: UNK

REACTIONS (14)
  - Paraesthesia [Unknown]
  - Dry mouth [Unknown]
  - Dyspnoea exertional [Unknown]
  - Headache [Unknown]
  - Drug dose omission [Unknown]
  - Fatigue [Unknown]
  - Nausea [Unknown]
  - Oedema peripheral [Unknown]
  - Constipation [Unknown]
  - Muscle spasms [Unknown]
  - Arthralgia [Recovering/Resolving]
  - Joint stiffness [Unknown]
  - Dry eye [Unknown]
  - Hypoaesthesia [Unknown]
